FAERS Safety Report 4847321-6 (Version None)
Quarter: 2005Q4

REPORT INFORMATION
  Report Type: 
  Country: None (occurrence: None)
  Receive Date: 20051205
  Receipt Date: 20051205
  Transmission Date: 20060501
  Serious: No
  Sender: FDA-Public Use
  Company Number: None

PATIENT
  Age: 34 Year
  Sex: Female
  Weight: 47.6277 kg

DRUGS (1)
  1. LEVAQUIN [Suspect]
     Indication: SINUSITIS
     Dosage: 500MG   ONCE DAILY  PO
     Route: 048
     Dates: start: 20051128, end: 20051130

REACTIONS (4)
  - FEELING ABNORMAL [None]
  - HALLUCINATION [None]
  - NIGHTMARE [None]
  - SOMNOLENCE [None]
